FAERS Safety Report 10278501 (Version 1)
Quarter: 2014Q3

REPORT INFORMATION
  Report Type: Spontaneous
  Country: MX (occurrence: MX)
  Receive Date: 20140704
  Receipt Date: 20140704
  Transmission Date: 20150326
  Serious: Yes (Other)
  Sender: FDA-Public Use
  Company Number: PHHY2014MX082678

PATIENT
  Age: 16 Year
  Sex: Male

DRUGS (11)
  1. PROGRAF [Suspect]
     Active Substance: TACROLIMUS\TACROLIMUS ANHYDROUS
  2. LEVOTHYROXIN [Concomitant]
     Active Substance: LEVOTHYROXINE
     Dosage: 1 DF, QD
     Dates: start: 201305
  3. NORVASC [Concomitant]
     Active Substance: AMLODIPINE BESYLATE
     Indication: LIVER TRANSPLANT
     Dosage: 1 DF, QD
     Dates: start: 201307
  4. CERTICAN [Concomitant]
     Active Substance: EVEROLIMUS
     Indication: PROPHYLAXIS
     Dosage: 1 DF, QD
     Dates: start: 20140220
  5. RENITEC [Concomitant]
     Active Substance: ENALAPRIL MALEATE
     Dosage: 1 DF, UNK
     Dates: start: 201403
  6. MYFORTIC [Suspect]
     Active Substance: MYCOPHENOLATE SODIUM
     Indication: ALAGILLE SYNDROME
     Dosage: 2 TABLETS, DAILY
     Route: 048
     Dates: start: 20120820, end: 20140220
  7. MYFORTIC [Suspect]
     Active Substance: MYCOPHENOLATE SODIUM
     Indication: OFF LABEL USE
     Dosage: 4 TABLETS, DAILY (2 IN THE MORNING AND 2 IN THE AFTERNOON)
     Route: 048
     Dates: start: 20140220
  8. FOLIC ACID. [Concomitant]
     Active Substance: FOLIC ACID
     Dosage: 1 UKN, QD
     Dates: start: 201310
  9. CALTRATE [Concomitant]
     Active Substance: CALCIUM CARBONATE
     Indication: BLOOD CALCIUM DECREASED
     Dosage: 1 UKN, QD
     Dates: start: 20140415
  10. POLIVITAMINE [Concomitant]
     Active Substance: VITAMINS
     Dosage: 1 UKN, UNK
     Dates: start: 201304
  11. CALCITROL [Concomitant]
     Active Substance: CALCITRIOL
     Indication: BLOOD CALCIUM DECREASED
     Dosage: 1 DF, QD
     Dates: start: 20140415

REACTIONS (2)
  - Nephropathy toxic [Recovered/Resolved]
  - Renal impairment [Recovered/Resolved]

NARRATIVE: CASE EVENT DATE: 201310
